FAERS Safety Report 4277356-6 (Version None)
Quarter: 2004Q1

REPORT INFORMATION
  Report Type: 
  Country: None (occurrence: None)
  Receive Date: 20040121
  Receipt Date: 20040107
  Transmission Date: 20041129
  Serious: Yes (Hospitalization)
  Sender: FDA-Public Use
  Company Number: US062763

PATIENT
  Age: 50 Year
  Sex: Female

DRUGS (9)
  1. ENBREL [Suspect]
     Indication: RHEUMATOID ARTHRITIS
     Dosage: 25 MG, TWICE WEEKLY, SC
     Route: 058
     Dates: end: 20030901
  2. METHOTREXATE [Concomitant]
  3. HYDROXYCHLOROQUINE [Concomitant]
  4. ROFECOXIB [Concomitant]
  5. PRAVASTATIN SODIUM [Concomitant]
  6. ATENOLOL [Concomitant]
  7. POTASSIUM CHLORIDE [Concomitant]
  8. MESALAZINE [Concomitant]
  9. ARTIFICIAL TEARS [Concomitant]

REACTIONS (36)
  - ARTHRALGIA [None]
  - ASTHENIA [None]
  - BIOPSY BREAST ABNORMAL [None]
  - BIOPSY COLON ABNORMAL [None]
  - BLOOD POTASSIUM DECREASED [None]
  - CEREBRAL ISCHAEMIA [None]
  - CLONUS [None]
  - COLITIS [None]
  - DYSURIA [None]
  - ESCHERICHIA INFECTION [None]
  - FAECAL OCCULT BLOOD POSITIVE [None]
  - FALL [None]
  - GASTRIC ULCER [None]
  - HAEMATOCRIT DECREASED [None]
  - HAEMOGLOBIN DECREASED [None]
  - HYPERREFLEXIA [None]
  - HYPOAESTHESIA [None]
  - INFLAMMATION [None]
  - LUMBAR PUNCTURE ABNORMAL [None]
  - LYMPHOCYTE COUNT DECREASED [None]
  - MAMMOGRAM ABNORMAL [None]
  - MUSCLE DISORDER [None]
  - MUSCLE SPASMS [None]
  - NECK PAIN [None]
  - NEUROGENIC BLADDER [None]
  - NEUTROPHIL COUNT INCREASED [None]
  - NUCLEAR MAGNETIC RESONANCE IMAGING ABNORMAL [None]
  - OESOPHAGITIS [None]
  - PAIN IN EXTREMITY [None]
  - PARAESTHESIA [None]
  - QUADRIPARESIS [None]
  - SENSORY LOSS [None]
  - SPINAL CORD INJURY CERVICAL [None]
  - URINARY RETENTION [None]
  - URINE LEUKOCYTE ESTERASE POSITIVE [None]
  - WHITE BLOOD CELL COUNT DECREASED [None]
